FAERS Safety Report 21076497 (Version 1)
Quarter: 2022Q3

REPORT INFORMATION
  Report Type: Spontaneous
  Country: US (occurrence: None)
  Receive Date: 20220713
  Receipt Date: 20220713
  Transmission Date: 20221027
  Serious: Yes (Life-Threatening, Hospitalization)
  Sender: FDA-Public Use
  Company Number: None

PATIENT
  Age: 45 Year
  Sex: Female
  Weight: 62.4 kg

DRUGS (1)
  1. TRUXIMA [Suspect]
     Active Substance: RITUXIMAB-ABBS
     Indication: Product used for unknown indication

REACTIONS (6)
  - Infusion related reaction [None]
  - Hypersensitivity [None]
  - Device connection issue [None]
  - Infusion site pain [None]
  - Chest pain [None]
  - Medical device pain [None]

NARRATIVE: CASE EVENT DATE: 20220712
